FAERS Safety Report 7597249-6 (Version None)
Quarter: 2011Q3

REPORT INFORMATION
  Report Type: 
  Country: None (occurrence: None)
  Receive Date: 20110708
  Receipt Date: 20101216
  Transmission Date: 20111222
  Serious: No
  Sender: FDA-Public Use
  Company Number: US-GLAXOSMITHKLINE-A0900153A

PATIENT
  Age: 48 Year
  Sex: Male

DRUGS (3)
  1. RHINOCORT [Concomitant]
  2. FLOVENT [Suspect]
     Indication: ASTHMA
     Dosage: 2PUFF TWICE PER DAY
     Route: 055
     Dates: start: 20030101
  3. ALBUTEROL SULFATE AUTOHALER [Concomitant]

REACTIONS (2)
  - WHEEZING [None]
  - PRODUCT QUALITY ISSUE [None]
